FAERS Safety Report 6193792-5 (Version None)
Quarter: 2009Q2

REPORT INFORMATION
  Report Type: 
  Country: None (occurrence: None)
  Receive Date: 20090518
  Receipt Date: 20090512
  Transmission Date: 20091009
  Serious: Yes (Death, Other)
  Sender: FDA-Public Use
  Company Number: JP-ROXANE LABORATORIES, INC.-2009-RO-00488RO

PATIENT
  Age: 57 Year
  Sex: Male

DRUGS (18)
  1. METHOTREXATE [Suspect]
     Indication: ACUTE MYELOID LEUKAEMIA
     Route: 037
  2. MERCAPTOPURINE [Suspect]
     Indication: ACUTE MYELOID LEUKAEMIA
  3. MERCAPTOPURINE [Suspect]
  4. MERCAPTOPURINE [Suspect]
  5. DAUNORUBICIN HCL [Suspect]
     Indication: ACUTE MYELOID LEUKAEMIA
  6. DAUNORUBICIN HCL [Suspect]
  7. CYTARABINE [Suspect]
     Indication: ACUTE MYELOID LEUKAEMIA
  8. CYTARABINE [Suspect]
  9. CYTARABINE [Suspect]
  10. CYTARABINE [Suspect]
  11. CYTARABINE [Suspect]
  12. PREDNISOLONE [Suspect]
     Indication: ACUTE MYELOID LEUKAEMIA
  13. PREDNISOLONE [Suspect]
  14. PREDNISOLONE [Suspect]
  15. ADRIAMYCIN RDF [Suspect]
     Indication: ACUTE MYELOID LEUKAEMIA
  16. MITOXANTRON [Suspect]
     Indication: ACUTE MYELOID LEUKAEMIA
  17. TRANQUILIZER [Suspect]
     Indication: DELIRIUM
  18. TRANQUILIZER [Suspect]
     Indication: DISORIENTATION

REACTIONS (11)
  - ACUTE MYELOID LEUKAEMIA RECURRENT [None]
  - BULBAR PALSY [None]
  - EXOPHTHALMOS [None]
  - FACIAL PALSY [None]
  - LEUKOENCEPHALOPATHY [None]
  - LIVER DISORDER [None]
  - LOSS OF CONSCIOUSNESS [None]
  - NEOPLASM OF ORBIT [None]
  - OPHTHALMOPLEGIA [None]
  - PULMONARY OEDEMA [None]
  - RESPIRATORY FAILURE [None]
